FAERS Safety Report 5794875-1 (Version None)
Quarter: 2008Q2

REPORT INFORMATION
  Report Type: 
  Country: None (occurrence: None)
  Receive Date: 20080626
  Receipt Date: 20080618
  Transmission Date: 20081010
  Serious: Yes (Other)
  Sender: FDA-Public Use
  Company Number: 2008SP011896

PATIENT
  Age: 52 Year
  Sex: Male
  Weight: 72.2 kg

DRUGS (3)
  1. PEG-INTRON [Suspect]
     Indication: HEPATITIS C
     Dosage: 0.5 MCG/KG; QW;
     Dates: start: 20071112
  2. BLINDED PEGINTERFERON ALFA-2B (S-P) [Suspect]
     Indication: HEPATITIS C
     Dosage: 500 MG; BID;
     Dates: start: 20071112
  3. ACETAMINOPHEN [Concomitant]

REACTIONS (1)
  - CYTOLYTIC HEPATITIS [None]
